FAERS Safety Report 17537531 (Version 2)
Quarter: 2020Q1

REPORT INFORMATION
  Report Type: Spontaneous
  Country: ES (occurrence: ES)
  Receive Date: 20200313
  Receipt Date: 20200313
  Transmission Date: 20200409
  Serious: Yes (Other)
  Sender: FDA-Public Use
  Company Number: ES-BAYER-2020-036832

PATIENT
  Age: 18 Year
  Sex: Female

DRUGS (1)
  1. LIOFORA [Suspect]
     Active Substance: DROSPIRENONE\ETHINYL ESTRADIOL
     Indication: POLYCYSTIC OVARIES
     Dosage: 1 DF, QD
     Route: 048
     Dates: start: 20190212, end: 20200212

REACTIONS (2)
  - Drug-induced liver injury [Recovering/Resolving]
  - Vomiting [Recovering/Resolving]

NARRATIVE: CASE EVENT DATE: 20200115
